FAERS Safety Report 14352213 (Version 1)
Quarter: 2018Q1

REPORT INFORMATION
  Report Type: Spontaneous
  Country: US (occurrence: US)
  Receive Date: 20180104
  Receipt Date: 20180104
  Transmission Date: 20180509
  Serious: No
  Sender: FDA-Public Use
  Company Number: US-ALLERGAN-1754857US

PATIENT
  Sex: Female

DRUGS (1)
  1. ACZONE [Suspect]
     Active Substance: DAPSONE
     Indication: ACNE
     Dosage: UNK UNK, QD
     Route: 061
     Dates: start: 201709, end: 20171001

REACTIONS (3)
  - Skin depigmentation [Recovering/Resolving]
  - Inappropriate schedule of drug administration [Unknown]
  - Drug ineffective [Unknown]
